FAERS Safety Report 10041920 (Version 1)
Quarter: 2014Q1

REPORT INFORMATION
  Report Type: Spontaneous
  Country: US (occurrence: US)
  Receive Date: 20140327
  Receipt Date: 20140327
  Transmission Date: 20141002
  Serious: Yes (Death, Hospitalization, Other)
  Sender: FDA-Public Use
  Company Number: PHHY2014US033216

PATIENT
  Age: 41 Year
  Sex: Male

DRUGS (10)
  1. LAMIVUDINE [Suspect]
     Indication: ANTIRETROVIRAL THERAPY
  2. CEFTRIAXONE [Suspect]
     Indication: URETHRITIS
  3. AZITHROMYCIN [Suspect]
     Indication: URETHRITIS
  4. TENOFOVIR [Suspect]
     Indication: ANTIRETROVIRAL THERAPY
     Dates: start: 1999
  5. DIDANOSINE [Suspect]
     Indication: ANTIRETROVIRAL THERAPY
     Dates: start: 1999
  6. ATAZANAVIR [Suspect]
     Indication: ANTIRETROVIRAL THERAPY
     Dates: start: 1999
  7. RITONAVIR [Suspect]
     Indication: ANTIRETROVIRAL THERAPY
     Dates: start: 1999
  8. ETRAVIRINE [Suspect]
     Indication: ANTIRETROVIRAL THERAPY
  9. RALTEGRAVIR [Suspect]
     Indication: ANTIRETROVIRAL THERAPY
  10. ENFUVIRTIDE [Suspect]
     Indication: ANTIRETROVIRAL THERAPY

REACTIONS (23)
  - Death [Fatal]
  - Vanishing bile duct syndrome [Unknown]
  - Fatigue [Unknown]
  - Nausea [Recovering/Resolving]
  - Abdominal pain [Recovering/Resolving]
  - Ocular icterus [Unknown]
  - Pancreatic enlargement [Unknown]
  - Pruritus generalised [Unknown]
  - Hyperbilirubinaemia [Unknown]
  - Cholestasis [Unknown]
  - Hepatic fibrosis [Unknown]
  - Jaundice [Unknown]
  - Pneumococcal sepsis [Unknown]
  - Intussusception [Unknown]
  - Anastomotic haemorrhage [Unknown]
  - Renal failure [Unknown]
  - Pancreatitis [Unknown]
  - Hodgkin^s disease [Unknown]
  - Epstein-Barr virus test positive [Unknown]
  - Cytomegalovirus test positive [Unknown]
  - Splenomegaly [Unknown]
  - Haemorrhagic ascites [Unknown]
  - Hepatomegaly [Unknown]
